FAERS Safety Report 15941996 (Version 1)
Quarter: 2019Q1

REPORT INFORMATION
  Report Type: Spontaneous
  Country: FR (occurrence: FR)
  Receive Date: 20190209
  Receipt Date: 20190209
  Transmission Date: 20190417
  Serious: Yes (Hospitalization, Other)
  Sender: FDA-Public Use
  Company Number: FR-BRISTOL-MYERS SQUIBB COMPANY-BMS-2019-011807

PATIENT
  Age: 90 Year
  Sex: Female
  Weight: 55 kg

DRUGS (4)
  1. ZYPREXA [Suspect]
     Active Substance: OLANZAPINE
     Indication: PRODUCT USED FOR UNKNOWN INDICATION
     Dosage: 2.5 MG, DRUG INTERVAL:1 DAY
     Route: 048
     Dates: start: 20180912
  2. ELIQUIS [Suspect]
     Active Substance: APIXABAN
     Indication: THROMBOSIS PROPHYLAXIS
     Dosage: 2.5 MG, DRUG INTERVAL:1 DAY
     Route: 048
     Dates: start: 20180912, end: 20181206
  3. VALSARTAN. [Suspect]
     Active Substance: VALSARTAN
     Indication: HYPERTENSION
     Dosage: 40 MG, DRUG INTERVAL:1 DAY
     Route: 048
     Dates: start: 20180912
  4. SERESTA [Suspect]
     Active Substance: OXAZEPAM
     Indication: PRODUCT USED FOR UNKNOWN INDICATION
     Dosage: 10 MG, DRUG INTERVAL:1 DAY
     Route: 048
     Dates: start: 20180912

REACTIONS (3)
  - Fall [Recovering/Resolving]
  - Subarachnoid haemorrhage [Recovering/Resolving]
  - Subdural haemorrhage [Unknown]

NARRATIVE: CASE EVENT DATE: 201810
